FAERS Safety Report 13828789 (Version 2)
Quarter: 2017Q3

REPORT INFORMATION
  Report Type: Spontaneous
  Country: US (occurrence: US)
  Receive Date: 20170803
  Receipt Date: 20170816
  Transmission Date: 20171127
  Serious: No
  Sender: FDA-Public Use
  Company Number: US-009507513-1707USA011021

PATIENT
  Age: 33 Year
  Sex: Female

DRUGS (2)
  1. NEXPLANON [Suspect]
     Active Substance: ETONOGESTREL
     Dosage: 1 ROD, EVERY 3 YEARS
     Route: 059
     Dates: start: 20170725
  2. NEXPLANON [Suspect]
     Active Substance: ETONOGESTREL
     Dosage: 1 ROD, EVERY 3 YEARS
     Route: 059
     Dates: start: 201403, end: 20170725

REACTIONS (4)
  - Incorrect drug administration duration [Unknown]
  - No adverse event [Unknown]
  - Device breakage [Recovered/Resolved]
  - Complication of device removal [Recovered/Resolved]

NARRATIVE: CASE EVENT DATE: 2017
